FAERS Safety Report 8609854-6 (Version None)
Quarter: 2012Q3

REPORT INFORMATION
  Report Type: 
  Country: None (occurrence: None)
  Receive Date: 20120821
  Receipt Date: 20120627
  Transmission Date: 20120928
  Serious: No
  Sender: FDA-Public Use
  Company Number: US-009507513-1207USA000941

PATIENT

DRUGS (1)
  1. DR. SCHOLL'S ONE STEP CORN REMOVERS [Suspect]
     Indication: HYPERKERATOSIS
     Dosage: UNK, ONCE
     Route: 061
     Dates: start: 20120626

REACTIONS (1)
  - SKIN DISCOLOURATION [None]
